FAERS Safety Report 9459960 (Version 1)
Quarter: 2013Q3

REPORT INFORMATION
  Report Type: Spontaneous
  Country: US (occurrence: US)
  Receive Date: 20130815
  Receipt Date: 20130815
  Transmission Date: 20140515
  Serious: No
  Sender: FDA-Public Use
  Company Number: US-TEVA-426420USA

PATIENT
  Age: 25 Year
  Sex: Female
  Weight: 81.72 kg

DRUGS (2)
  1. PARAGARD 380A [Suspect]
     Indication: CONTRACEPTION
     Route: 015
     Dates: start: 20130718, end: 20130807
  2. PARAGARD 380A [Suspect]
     Route: 015
     Dates: start: 20130807

REACTIONS (1)
  - Device expulsion [Recovered/Resolved]
